FAERS Safety Report 7773433-3 (Version None)
Quarter: 2011Q3

REPORT INFORMATION
  Report Type: 
  Country: None (occurrence: None)
  Receive Date: 20110922
  Receipt Date: 20110912
  Transmission Date: 20111222
  Serious: Yes (Death, Hospitalization)
  Sender: FDA-Public Use
  Company Number: US-MPIJNJ-2011-03858

PATIENT
  Sex: Male
  Weight: 61.2 kg

DRUGS (1)
  1. VELCADE [Suspect]
     Indication: MULTIPLE MYELOMA
     Dosage: 1.8 MG, 1/WEEK
     Route: 042
     Dates: start: 20110103, end: 20110523

REACTIONS (4)
  - DECUBITUS ULCER [None]
  - STAPHYLOCOCCAL INFECTION [None]
  - DEATH [None]
  - GENERALISED OEDEMA [None]
